FAERS Safety Report 9685546 (Version 1)
Quarter: 2013Q4

REPORT INFORMATION
  Report Type: Spontaneous
  Country: US (occurrence: None)
  Receive Date: 20131112
  Receipt Date: 20131112
  Transmission Date: 20140711
  Serious: Yes (Life-Threatening, Other)
  Sender: FDA-Public Use
  Company Number: None

PATIENT
  Age: 65 Year
  Sex: Male

DRUGS (5)
  1. ZYTIGA [Suspect]
     Indication: PROSTATE CANCER
     Route: 048
  2. HYDROCODONE/ACETAMINOPHEN [Concomitant]
  3. LISINOPRIL [Concomitant]
  4. LORAZEPAM [Concomitant]
  5. PREDNISONE [Concomitant]

REACTIONS (1)
  - Blood urine [None]
